FAERS Safety Report 5809416-X (Version None)
Quarter: 2008Q3

REPORT INFORMATION
  Report Type: 
  Country: None (occurrence: None)
  Receive Date: 20080715
  Receipt Date: 20080711
  Transmission Date: 20090109
  Serious: Yes (Hospitalization)
  Sender: FDA-Public Use
  Company Number: IT-RANBAXY-2008RR-16333

PATIENT

DRUGS (2)
  1. ACETAMINOPHEN [Suspect]
  2. NIMESULIDE RANBAXY 100MG GRANULATO PER SOSPENSIONE ORALE [Suspect]

REACTIONS (2)
  - HEPATITIS ACUTE [None]
  - JAUNDICE [None]
